FAERS Safety Report 4567750-8 (Version None)
Quarter: 2005Q1

REPORT INFORMATION
  Report Type: 
  Country: None (occurrence: None)
  Receive Date: 20050127
  Receipt Date: 20050118
  Transmission Date: 20050727
  Serious: Yes (Congenital Anomaly)
  Sender: FDA-Public Use
  Company Number: 2005014928

PATIENT
  Sex: Male

DRUGS (2)
  1. ZYRTEC [Suspect]
     Indication: ILL-DEFINED DISORDER
  2. LORATADINE [Suspect]
     Indication: ILL-DEFINED DISORDER

REACTIONS (4)
  - CONGENITAL GENITOURINARY ABNORMALITY [None]
  - CONGENITAL URETHRAL ANOMALY [None]
  - DRUG EXPOSURE DURING PREGNANCY [None]
  - PENILE SIZE REDUCED [None]
